FAERS Safety Report 4385657-6 (Version None)
Quarter: 2004Q2

REPORT INFORMATION
  Report Type: 
  Country: None (occurrence: None)
  Receive Date: 20040624
  Receipt Date: 20040608
  Transmission Date: 20050107
  Serious: Yes (Hospitalization)
  Sender: FDA-Public Use
  Company Number: 2004UW12004

PATIENT
  Age: 54 Year
  Sex: Male

DRUGS (9)
  1. CRESTOR [Suspect]
     Dosage: 10 MG PO
     Route: 048
  2. ZYRTEC [Concomitant]
  3. SALICYLATE [Concomitant]
  4. ATACAND [Concomitant]
  5. TRICOR [Concomitant]
  6. LEVOXYL [Concomitant]
  7. TUMS [Concomitant]
  8. VITAMIN B12 FOR INJECTION [Concomitant]
  9. ASPIRIN [Concomitant]

REACTIONS (5)
  - ASTHENIA [None]
  - HAEMATOCHEZIA [None]
  - MUSCLE CRAMP [None]
  - NAUSEA [None]
  - WEIGHT DECREASED [None]
